FAERS Safety Report 10651542 (Version 1)
Quarter: 2014Q4

REPORT INFORMATION
  Report Type: Spontaneous
  Country: None (occurrence: None)
  Receive Date: 20141212
  Receipt Date: 20141212
  Transmission Date: 20150529
  Serious: Yes (Hospitalization)
  Sender: FDA-Public Use
  Company Number: None

PATIENT
  Age: 75 Year
  Sex: Male
  Weight: 79.5 kg

DRUGS (1)
  1. GEMCITABINE HYDROCHLORIDE. [Suspect]
     Active Substance: GEMCITABINE HYDROCHLORIDE
     Dates: end: 20141103

REACTIONS (8)
  - Confusional state [None]
  - Atrial flutter [None]
  - Fall [None]
  - Presyncope [None]
  - Dizziness [None]
  - Atrial fibrillation [None]
  - Supraventricular tachycardia [None]
  - Atrial hypertrophy [None]

NARRATIVE: CASE EVENT DATE: 20141108
